FAERS Safety Report 11157318 (Version 1)
Quarter: 2015Q2

REPORT INFORMATION
  Report Type: Other
  Country: NL (occurrence: NL)
  Receive Date: 20150603
  Receipt Date: 20150603
  Transmission Date: 20150821
  Serious: Yes (Hospitalization)
  Sender: FDA-Public Use
  Company Number: NL-LUPIN PHARMACEUTICALS INC.-2015-01513

PATIENT
  Age: 54 Year
  Sex: Female

DRUGS (10)
  1. CARBAMAZEPINE. [Interacting]
     Active Substance: CARBAMAZEPINE
     Indication: EPILEPSY
  2. CARBAMAZEPINE. [Interacting]
     Active Substance: CARBAMAZEPINE
  3. VALPROIC ACID. [Interacting]
     Active Substance: VALPROIC ACID
     Indication: EPILEPSY
     Dosage: 1000 MG + 1500 MG
  4. FLUCLOXACILLIN [Interacting]
     Active Substance: FLUCLOXACILLIN
     Indication: INFECTION
     Dosage: 1200 MG
     Route: 042
  5. RIFAMPICIN [Suspect]
     Active Substance: RIFAMPIN
     Indication: INFECTION
     Route: 042
  6. CLONAZEPAM. [Interacting]
     Active Substance: CLONAZEPAM
     Route: 042
  7. RIFAMPICIN [Interacting]
     Active Substance: RIFAMPIN
  8. RIFAMPICIN [Interacting]
     Active Substance: RIFAMPIN
  9. CLONAZEPAM. [Interacting]
     Active Substance: CLONAZEPAM
     Indication: EPILEPSY
  10. CARBAMAZEPINE. [Interacting]
     Active Substance: CARBAMAZEPINE

REACTIONS (2)
  - Seizure [Recovered/Resolved]
  - Drug interaction [Unknown]
